FAERS Safety Report 15721610 (Version 1)
Quarter: 2018Q4

REPORT INFORMATION
  Report Type: Spontaneous
  Country: FR (occurrence: FR)
  Receive Date: 20181214
  Receipt Date: 20181214
  Transmission Date: 20190205
  Serious: Yes (Hospitalization, Other)
  Sender: FDA-Public Use
  Company Number: FR-BRISTOL-MYERS SQUIBB COMPANY-BMS-2018-116654

PATIENT
  Age: 76 Year
  Sex: Male
  Weight: 94 kg

DRUGS (1)
  1. ELIQUIS [Suspect]
     Active Substance: APIXABAN
     Indication: CEREBROVASCULAR ACCIDENT PROPHYLAXIS
     Dosage: 10 MG, PER DAY
     Route: 065
     Dates: end: 20181103

REACTIONS (8)
  - Melaena [Recovering/Resolving]
  - Eastern Cooperative Oncology Group performance status worsened [Recovering/Resolving]
  - Diarrhoea [Recovering/Resolving]
  - Weight decreased [Recovering/Resolving]
  - Abdominal pain [Recovering/Resolving]
  - Anaemia [Recovering/Resolving]
  - Dysphagia [Recovering/Resolving]
  - Decreased appetite [Recovering/Resolving]

NARRATIVE: CASE EVENT DATE: 20180726
